FAERS Safety Report 9002629 (Version 2)
Quarter: 2013Q1

REPORT INFORMATION
  Report Type: Spontaneous
  Country: CN (occurrence: CN)
  Receive Date: 20130107
  Receipt Date: 20130201
  Transmission Date: 20140127
  Serious: Yes (Hospitalization)
  Sender: FDA-Public Use
  Company Number: CN-BAYER-2013-001666

PATIENT
  Age: 50 Year
  Sex: Male

DRUGS (2)
  1. NIMOTOP [Suspect]
     Indication: SUBARACHNOID HAEMORRHAGE
     Dosage: 2 DF, TID
     Route: 048
     Dates: start: 20100124, end: 20100129
  2. PARACETAMOL [Concomitant]

REACTIONS (1)
  - Drug-induced liver injury [Recovering/Resolving]
